FAERS Safety Report 5150374-1 (Version None)
Quarter: 2006Q4

REPORT INFORMATION
  Report Type: 
  Country: None (occurrence: None)
  Receive Date: 20061108
  Receipt Date: 20061025
  Transmission Date: 20070319
  Serious: Yes (Hospitalization)
  Sender: FDA-Public Use
  Company Number: 2006133383

PATIENT
  Age: 71 Year
  Sex: Male

DRUGS (6)
  1. ATARAX [Suspect]
     Indication: DRUG USE FOR UNKNOWN INDICATION
     Dosage: 10 MG (1 D), ORAL
     Route: 048
     Dates: end: 20060521
  2. CARDENSIEL (BISOPROLOL FUMARATE) [Suspect]
     Indication: DRUG USE FOR UNKNOWN INDICATION
     Dosage: 1 DOSAGE FORM (1 D), ORAL
     Route: 048
     Dates: end: 20060521
  3. ZOLPIDEM TARTRATE [Suspect]
     Indication: DRUG USE FOR UNKNOWN INDICATION
     Dosage: 20 MG (10 MG, 2 IN 1 D), ORAL
     Route: 048
     Dates: end: 20060521
  4. DIALGIREX (DEXTROPROPOXYPHENE HYDROCHLORIDE, PARACETAMOL) [Suspect]
     Indication: DRUG USE FOR UNKNOWN INDICATION
     Dosage: ORAL
     Route: 048
  5. TAMSULOSIN HCL [Suspect]
     Indication: DRUG USE FOR UNKNOWN INDICATION
     Dosage: 0.4 MG (1 D), ORAL
     Route: 048
     Dates: end: 20060521
  6. ALPRAZOLAM [Suspect]
     Indication: DRUG USE FOR UNKNOWN INDICATION
     Dosage: 1 MG (0.5 MG, 2 IN 1 D), ORAL
     Route: 048

REACTIONS (4)
  - DEHYDRATION [None]
  - FALL [None]
  - MUSCULAR WEAKNESS [None]
  - RENAL FAILURE [None]
